FAERS Safety Report 18161972 (Version 1)
Quarter: 2020Q3

REPORT INFORMATION
  Report Type: Spontaneous
  Country: US (occurrence: US)
  Receive Date: 20200817
  Receipt Date: 20200817
  Transmission Date: 20201103
  Serious: No
  Sender: FDA-Public Use
  Company Number: None

PATIENT
  Age: 67 Year
  Sex: Female

DRUGS (13)
  1. LEVOTHYROXINE. [Concomitant]
     Active Substance: LEVOTHYROXINE
  2. ZOLPIDEM [Concomitant]
     Active Substance: ZOLPIDEM TARTRATE
  3. MELATONIN [Concomitant]
     Active Substance: MELATONIN
  4. LIDOCAINE HYDROCHLORIDE AND EPINEPHRINE BITARTRATE [Concomitant]
     Active Substance: EPINEPHRINE BITARTRATE\LIDOCAINE HYDROCHLORIDE
  5. LORAZEPAM. [Concomitant]
     Active Substance: LORAZEPAM
  6. PROCHLORPERAZINE. [Concomitant]
     Active Substance: PROCHLORPERAZINE
  7. MAGNESIUM [Concomitant]
     Active Substance: MAGNESIUM
  8. POTASSIUM [Concomitant]
     Active Substance: POTASSIUM
  9. VITAMIN C [Concomitant]
     Active Substance: ASCORBIC ACID
  10. ZINC. [Concomitant]
     Active Substance: ZINC
  11. VITAMIN B6 [Concomitant]
     Active Substance: PYRIDOXINE HYDROCHLORIDE
  12. CALCIUM + D [Concomitant]
     Active Substance: CALCIUM\VITAMIN D
  13. CAPECITABINE. [Suspect]
     Active Substance: CAPECITABINE
     Indication: OESOPHAGEAL CARCINOMA
     Route: 048
     Dates: start: 20200810

REACTIONS (3)
  - Constipation [None]
  - Therapy interrupted [None]
  - Abdominal pain [None]

NARRATIVE: CASE EVENT DATE: 20200810
